FAERS Safety Report 10329878 (Version 1)
Quarter: 2014Q3

REPORT INFORMATION
  Report Type: Spontaneous
  Country: US (occurrence: US)
  Receive Date: 20140721
  Receipt Date: 20140721
  Transmission Date: 20150326
  Serious: Yes (Hospitalization)
  Sender: FDA-Public Use
  Company Number: US-TEVA-494859USA

PATIENT
  Age: 52 Year
  Sex: Female

DRUGS (1)
  1. PROAIR HFA [Suspect]
     Active Substance: ALBUTEROL SULFATE
     Route: 055
     Dates: start: 20131212

REACTIONS (3)
  - Asthma [Unknown]
  - Intentional product misuse [Unknown]
  - Investigation [Unknown]

NARRATIVE: CASE EVENT DATE: 201406
